FAERS Safety Report 5872517-4 (Version None)
Quarter: 2008Q3

REPORT INFORMATION
  Report Type: 
  Country: None (occurrence: None)
  Receive Date: 20080905
  Receipt Date: 20080904
  Transmission Date: 20090109
  Serious: Yes (Other)
  Sender: FDA-Public Use
  Company Number: A0739350A

PATIENT
  Sex: Female

DRUGS (1)
  1. ALLI [Suspect]
     Indication: DRUG USE FOR UNKNOWN INDICATION

REACTIONS (27)
  - ABNORMAL FAECES [None]
  - ACCIDENT [None]
  - ADVERSE EVENT [None]
  - COUGH [None]
  - DEFAECATION URGENCY [None]
  - DIARRHOEA [None]
  - DRUG INEFFECTIVE [None]
  - DYSGEUSIA [None]
  - EPISTAXIS [None]
  - FATIGUE [None]
  - FEELING ABNORMAL [None]
  - FLATULENCE [None]
  - FOOD CRAVING [None]
  - GASTROINTESTINAL DISORDER [None]
  - HEADACHE [None]
  - HIP FRACTURE [None]
  - HORMONE LEVEL ABNORMAL [None]
  - HOT FLUSH [None]
  - HUNGER [None]
  - ILL-DEFINED DISORDER [None]
  - INTENTIONAL DRUG MISUSE [None]
  - LIMB INJURY [None]
  - MEDICATION ERROR [None]
  - NASOPHARYNGITIS [None]
  - NAUSEA [None]
  - WEIGHT FLUCTUATION [None]
  - WEIGHT INCREASED [None]
